FAERS Safety Report 8905639 (Version 1)
Quarter: 2012Q4

REPORT INFORMATION
  Report Type: 
  Country: BR (occurrence: BR)
  Receive Date: 20121111
  Receipt Date: 20121111
  Transmission Date: 20130627
  Serious: Yes (Hospitalization, Other)
  Sender: FDA-Public Use
  Company Number: PHHY2012BR103190

PATIENT
  Sex: Female

DRUGS (3)
  1. TEGRETOL CR [Suspect]
     Indication: EPILEPSY
     Dosage: 2 DF a day
  2. WELLBUTRIN [Concomitant]
     Indication: DEPRESSION
     Dosage: UNK UKN, UNK
  3. CITALOPRAM [Concomitant]
     Indication: DEPRESSION
     Dosage: UNK UKN, UNK

REACTIONS (3)
  - Diverticulitis [Recovering/Resolving]
  - Glaucoma [Not Recovered/Not Resolved]
  - Depression [Not Recovered/Not Resolved]
